FAERS Safety Report 16744065 (Version 1)
Quarter: 2019Q3

REPORT INFORMATION
  Report Type: Spontaneous
  Country: US (occurrence: US)
  Receive Date: 20190827
  Receipt Date: 20190827
  Transmission Date: 20191005
  Serious: No
  Sender: FDA-Public Use
  Company Number: US-HORIZON-RAV-0262-2019

PATIENT
  Age: 4 Year
  Sex: Male

DRUGS (1)
  1. RAVICTI [Suspect]
     Active Substance: GLYCEROL PHENYLBUTYRATE
     Indication: UREA CYCLE DISORDER
     Dosage: 2ML TID
     Route: 048
     Dates: start: 20180823

REACTIONS (2)
  - Decreased appetite [Unknown]
  - Flatulence [Unknown]
